FAERS Safety Report 6221863-3 (Version None)
Quarter: 2009Q2

REPORT INFORMATION
  Report Type: 
  Country: None (occurrence: None)
  Receive Date: 20090611
  Receipt Date: 20070516
  Transmission Date: 20091009
  Serious: Yes (Hospitalization, Other)
  Sender: FDA-Public Use
  Company Number: US-ASTRAZENECA-2006UW10843

PATIENT
  Age: 16628 Day
  Sex: Female
  Weight: 96.6 kg

DRUGS (6)
  1. SEROQUEL [Suspect]
     Route: 048
     Dates: start: 19970101
  2. SEROQUEL [Suspect]
     Dosage: DOSE FLUCTUATED FROM 50 MG TO 300 MG
     Route: 048
     Dates: start: 20020124, end: 20070116
  3. RISPERDAL [Suspect]
     Indication: DEPRESSION
     Dates: start: 19990709, end: 20040324
  4. AVANDIA [Concomitant]
     Route: 048
     Dates: start: 20001204
  5. AVANDIA [Concomitant]
     Route: 048
     Dates: start: 20010330
  6. GLUCOPHAGE [Concomitant]
     Dosage: 500 MG TO 1000 MG
     Route: 048
     Dates: start: 19990627

REACTIONS (6)
  - DIABETES MELLITUS [None]
  - DIABETES MELLITUS INADEQUATE CONTROL [None]
  - DIABETIC KETOACIDOSIS [None]
  - METABOLIC ACIDOSIS [None]
  - PANCREATITIS [None]
  - PANCREATITIS ACUTE [None]
